FAERS Safety Report 6473043-4 (Version None)
Quarter: 2009Q4

REPORT INFORMATION
  Report Type: 
  Country: None (occurrence: None)
  Receive Date: 20091204
  Receipt Date: 20091120
  Transmission Date: 20100525
  Serious: No
  Sender: FDA-Public Use
  Company Number: US-SOLVAY-00209005056

PATIENT
  Age: 7 Year
  Sex: Male
  Weight: 52.2 kg

DRUGS (6)
  1. SINGULAIR [Concomitant]
     Indication: SEASONAL ALLERGY
     Dosage: DAILY DOSE:  UNKNOWN
     Route: 048
  2. ANDROGEL [Suspect]
     Indication: ACCIDENTAL EXPOSURE
     Dosage: DAILY DOSE:  UNKNOWN
     Route: 062
     Dates: start: 20060101, end: 20081104
  3. ANDRODERM [Suspect]
     Indication: BLOOD TESTOSTERONE DECREASED
     Dosage: DAILY DOSE: 5 MILLIGRAM(S)
     Route: 062
     Dates: start: 20081105, end: 20090802
  4. ANDRODERM [Suspect]
     Dosage: DAILY DOSE: 5 MILLIGRAM(S)
     Route: 062
     Dates: start: 20090803
  5. ALLEGRA [Concomitant]
     Indication: SEASONAL ALLERGY
     Dosage: DAILY DOSE:  UNKNOWN
     Route: 048
  6. EPIPEN [Concomitant]
     Indication: FOOD ALLERGY
     Dosage: DAILY DOSE:  UNKNOWN, FREQUENCY: AS NEEDED.
     Route: 065

REACTIONS (2)
  - BLOOD TESTOSTERONE INCREASED [None]
  - PRECOCIOUS PUBERTY [None]
